FAERS Safety Report 4919938-1 (Version None)
Quarter: 2006Q1

REPORT INFORMATION
  Report Type: 
  Country: None (occurrence: None)
  Receive Date: 20060223
  Receipt Date: 20050926
  Transmission Date: 20060701
  Serious: Yes (Other)
  Sender: FDA-Public Use
  Company Number: PHEH2005US10678

PATIENT
  Sex: Female

DRUGS (6)
  1. ZOMETA [Suspect]
     Indication: METASTASES TO BONE
     Dates: start: 20030702, end: 20040920
  2. FASLODEX [Concomitant]
     Dosage: ONE TIME PER MONTH
     Route: 030
     Dates: start: 20031114
  3. MOTRIN [Concomitant]
     Indication: PAIN
  4. TAXOTERE [Concomitant]
  5. XELODA [Concomitant]
     Dosage: ^3 PILLS 2 TIMES PER DAY FOR 14 DAYS
     Dates: start: 20030601
  6. TENORMIN [Concomitant]
     Dosage: 50 MG, BID

REACTIONS (10)
  - BONE DISORDER [None]
  - DENTAL CARIES [None]
  - DENTAL OPERATION [None]
  - OSTEONECROSIS [None]
  - PRIMARY SEQUESTRUM [None]
  - RADIATION INJURY [None]
  - RADIOTHERAPY [None]
  - SPINAL CORD COMPRESSION [None]
  - TOOTH EXTRACTION [None]
  - TOOTH FRACTURE [None]
